FAERS Safety Report 7544017-7 (Version None)
Quarter: 2011Q2

REPORT INFORMATION
  Report Type: 
  Country: None (occurrence: None)
  Receive Date: 20110613
  Receipt Date: 20041110
  Transmission Date: 20111010
  Serious: Yes (Hospitalization, Other)
  Sender: FDA-Public Use
  Company Number: PHHO2004JP16107

PATIENT
  Sex: Male
  Weight: 80 kg

DRUGS (3)
  1. ACINON [Concomitant]
     Indication: GASTRIC ULCER HAEMORRHAGE
     Dosage: 300 MG/DAY
     Route: 048
     Dates: start: 20030711
  2. SIMVASTATIN [Concomitant]
     Indication: HYPERCHOLESTEROLAEMIA
     Dosage: 5 MG/DAY
     Route: 048
     Dates: start: 20030206
  3. DIOVAN [Suspect]
     Indication: HYPERTENSION
     Dosage: 80 MG, QD
     Route: 048
     Dates: start: 20021212

REACTIONS (3)
  - GASTRIC ULCER HAEMORRHAGE [None]
  - PALPITATIONS [None]
  - ATRIAL FIBRILLATION [None]
